FAERS Safety Report 22608783 (Version 1)
Quarter: 2023Q2

REPORT INFORMATION
  Report Type: Spontaneous
  Country: US (occurrence: US)
  Receive Date: 20230616
  Receipt Date: 20230616
  Transmission Date: 20230721
  Serious: No
  Sender: FDA-Public Use
  Company Number: US-GSK-US2023080354

PATIENT
  Sex: Female

DRUGS (1)
  1. MEPOLIZUMAB [Suspect]
     Active Substance: MEPOLIZUMAB
     Indication: Asthma
     Dosage: 100 MG/ML (NUCALA SUBCUTANEOUS SOLUTION AUTO-INJECTOR 100 MG/ML)
     Route: 058
     Dates: end: 20230601

REACTIONS (1)
  - Injection site pain [Not Recovered/Not Resolved]
